FAERS Safety Report 8113851-7 (Version None)
Quarter: 2012Q1

REPORT INFORMATION
  Report Type: 
  Country: None (occurrence: None)
  Receive Date: 20120203
  Receipt Date: 20120202
  Transmission Date: 20120608
  Serious: Yes (Hospitalization)
  Sender: FDA-Public Use
  Company Number: PHHO2011DE15053

PATIENT
  Sex: Female
  Weight: 58.6 kg

DRUGS (4)
  1. PANTOPRAZOLE [Concomitant]
     Dosage: 80 MG, QD
     Dates: start: 20110809, end: 20110902
  2. SANDOSTATIN LAR [Suspect]
     Indication: CARCINOID TUMOUR
     Dosage: 30 MG, MONTHLY
     Dates: start: 20080101
  3. PANTOPRAZOLE [Concomitant]
     Indication: GASTRITIS PROPHYLAXIS
     Dosage: 40 MG, QD
     Dates: start: 20040101
  4. EVEROLIMUS [Suspect]
     Indication: CARCINOID TUMOUR
     Dosage: 10 MG, QD
     Route: 048
     Dates: start: 20080228, end: 20110811

REACTIONS (3)
  - NEOPLASM MALIGNANT [None]
  - NEOPLASM PROGRESSION [None]
  - CONCOMITANT DISEASE PROGRESSION [None]
